FAERS Safety Report 6221549-5 (Version None)
Quarter: 2009Q2

REPORT INFORMATION
  Report Type: 
  Country: None (occurrence: None)
  Receive Date: 20090610
  Receipt Date: 20090528
  Transmission Date: 20091009
  Serious: Yes (Life-Threatening, Hospitalization)
  Sender: FDA-Public Use
  Company Number: US-ELI_LILLY_AND_COMPANY-US200810007487

PATIENT
  Sex: Male
  Weight: 107.94 kg

DRUGS (9)
  1. BYETTA [Suspect]
     Dosage: 5 UG, 2/D
     Route: 065
     Dates: start: 20060825, end: 20061027
  2. INSULIN [Concomitant]
     Dosage: UNK, AS NEEDED
     Route: 065
  3. INSULIN MIXTARD HUMAN [Concomitant]
     Dosage: 31 U, EACH EVENING
     Route: 065
  4. GLYBURIDE [Concomitant]
     Dosage: UNK, EACH EVENING
     Route: 065
  5. ASPIRIN [Concomitant]
     Dosage: 81 MG, DAILY (1/D)
     Route: 048
  6. LASIX [Concomitant]
     Dosage: 40 MG, DAILY (1/D)
     Route: 048
  7. COZAAR [Concomitant]
     Dosage: 50 MG, DAILY (1/D)
     Route: 048
  8. LEVAQUIN [Concomitant]
  9. LIPITOR [Concomitant]
     Dosage: 20 MG, DAILY (1/D)
     Route: 065

REACTIONS (13)
  - ANAEMIA [None]
  - ATELECTASIS [None]
  - BLOOD GLUCOSE INCREASED [None]
  - COLITIS [None]
  - DECUBITUS ULCER [None]
  - PANCREATITIS [None]
  - PLEURAL EFFUSION [None]
  - PNEUMONIA STAPHYLOCOCCAL [None]
  - PYREXIA [None]
  - RENAL FAILURE ACUTE [None]
  - RESPIRATORY FAILURE [None]
  - SEPSIS [None]
  - SYSTEMIC INFLAMMATORY RESPONSE SYNDROME [None]
